FAERS Safety Report 9454816 (Version 2)
Quarter: 2013Q4

REPORT INFORMATION
  Report Type: Spontaneous
  Country: US (occurrence: US)
  Receive Date: 20130812
  Receipt Date: 20131231
  Transmission Date: 20140711
  Serious: No
  Sender: FDA-Public Use
  Company Number: US-B.I. PHARMACEUTICALS,INC./RIDGEFIELD-2013-BI-23719BP

PATIENT
  Age: 84 Year
  Sex: Male

DRUGS (6)
  1. COMBIVENT [Suspect]
     Indication: INHALATION THERAPY
     Dosage: STRENGTH: 20 MCG / 100 MCG,
     Route: 055
     Dates: start: 20130802
  2. COMBIVENT [Suspect]
     Indication: CHRONIC OBSTRUCTIVE PULMONARY DISEASE
     Dosage: STRENGTH: 20 MCG / 100 MCG,80 MCG /400MCG
     Route: 055
     Dates: start: 201309
  3. COMBIVENT [Suspect]
     Indication: INHALATION THERAPY
     Dosage: STRENGTH: 18 MCG / 103 MCG
     Route: 055
     Dates: start: 2011
  4. ADVAIR [Concomitant]
     Indication: CHRONIC OBSTRUCTIVE PULMONARY DISEASE
     Route: 055
     Dates: start: 2011
  5. EYE DROPS [Concomitant]
     Indication: ANGLE CLOSURE GLAUCOMA
     Route: 061
     Dates: start: 2011
  6. ALBUTEROL/IPRATROPIUM NEBULIZER TREATMENT [Concomitant]
     Indication: CHRONIC OBSTRUCTIVE PULMONARY DISEASE
     Route: 055
     Dates: start: 2011

REACTIONS (9)
  - Cataract [Recovered/Resolved]
  - Fall [Recovered/Resolved]
  - Fall [Recovered/Resolved with Sequelae]
  - Dysphonia [Not Recovered/Not Resolved]
  - Arthralgia [Not Recovered/Not Resolved]
  - Vision blurred [Not Recovered/Not Resolved]
  - Blood calcium increased [Not Recovered/Not Resolved]
  - Off label use [Not Recovered/Not Resolved]
  - Off label use [Not Recovered/Not Resolved]
